FAERS Safety Report 10086471 (Version 2)
Quarter: 2014Q2

REPORT INFORMATION
  Report Type: Spontaneous
  Country: US (occurrence: US)
  Receive Date: 20140418
  Receipt Date: 20140508
  Transmission Date: 20141212
  Serious: No
  Sender: FDA-Public Use
  Company Number: US-GILEAD-2014-0100060

PATIENT
  Sex: Female

DRUGS (2)
  1. LETAIRIS [Suspect]
     Indication: PRODUCT USED FOR UNKNOWN INDICATION
     Dosage: 5 MG, QD
     Route: 065
     Dates: start: 20140113
  2. COUMADIN                           /00627701/ [Concomitant]

REACTIONS (7)
  - Arthralgia [Unknown]
  - Skin discolouration [Unknown]
  - No therapeutic response [Unknown]
  - Dyspnoea [Unknown]
  - Oedema peripheral [Recovered/Resolved]
  - Oedema [Unknown]
  - Fatigue [Unknown]
